FAERS Safety Report 19718030 (Version 1)
Quarter: 2021Q3

REPORT INFORMATION
  Report Type: Spontaneous
  Country: DE (occurrence: DE)
  Receive Date: 20210819
  Receipt Date: 20210819
  Transmission Date: 20211014
  Serious: Yes (Congenital Anomaly, Other)
  Sender: FDA-Public Use
  Company Number: DE-AUROBINDO-AUR-APL-2014-07587

PATIENT
  Age: 24 Year
  Sex: Female
  Weight: 55.5 kg

DRUGS (5)
  1. LEVETIRACETAM 250MG [Suspect]
     Active Substance: LEVETIRACETAM
     Indication: EPILEPSY
     Dosage: 250 MG, TWO TIMES A DAY
     Route: 064
     Dates: start: 20130516, end: 20131228
  2. RHOPHYLAC [Concomitant]
     Active Substance: HUMAN RHO(D) IMMUNE GLOBULIN
     Indication: PROPHYLAXIS AGAINST RH ISOIMMUNISATION
     Dosage: 300 MCG, DAILY
     Route: 064
     Dates: start: 20131209, end: 20131209
  3. LEVETIRACETAM 250MG [Suspect]
     Active Substance: LEVETIRACETAM
     Indication: JUVENILE MYOCLONIC EPILEPSY
  4. RHOPHYLAC [Concomitant]
     Active Substance: HUMAN RHO(D) IMMUNE GLOBULIN
     Indication: PROPHYLAXIS
  5. FEMIBION [Concomitant]
     Indication: PROPHYLAXIS
     Dosage: 0.8 MILLIGRAM, ONCE A DAY
     Route: 048
     Dates: start: 20130614

REACTIONS (11)
  - Infantile apnoea [Recovered/Resolved]
  - Cyanosis neonatal [Recovered/Resolved]
  - Foetal exposure during pregnancy [Unknown]
  - Patent ductus arteriosus [Recovered/Resolved]
  - Pericardial effusion [Not Recovered/Not Resolved]
  - Bradycardia neonatal [Recovered/Resolved]
  - Blood creatine phosphokinase MB increased [Not Recovered/Not Resolved]
  - Premature delivery [Unknown]
  - Premature baby [Recovering/Resolving]
  - Maternal exposure during pregnancy [Unknown]
  - Laryngomalacia [Recovered/Resolved]

NARRATIVE: CASE EVENT DATE: 20130516
